FAERS Safety Report 19436021 (Version 2)
Quarter: 2021Q2

REPORT INFORMATION
  Report Type: Report from Study
  Country: None (occurrence: US)
  Receive Date: 20210618
  Receipt Date: 20210620
  Transmission Date: 20210717
  Serious: Yes (Other)
  Sender: FDA-Public Use
  Company Number: US-ABBVIE-21K-163-3941820-00

PATIENT
  Age: 37 Year
  Sex: Female
  Weight: 113.5 kg

DRUGS (8)
  1. HUMIRA [Suspect]
     Active Substance: ADALIMUMAB
     Route: 058
     Dates: start: 202101, end: 20210126
  2. HUMIRA [Suspect]
     Active Substance: ADALIMUMAB
     Indication: HIDRADENITIS
     Dosage: CITRATE FREE
     Route: 058
     Dates: start: 202003, end: 202101
  3. MODERNA COVID?19 VACCINE [Concomitant]
     Active Substance: CX-024414
     Indication: COVID-19 IMMUNISATION
     Route: 030
     Dates: start: 20210106, end: 20210106
  4. MODERNA COVID?19 VACCINE [Concomitant]
     Active Substance: CX-024414
     Route: 030
     Dates: start: 20210203, end: 20210203
  5. TYLENOL [Concomitant]
     Active Substance: ACETAMINOPHEN
     Indication: HEADACHE
  6. FAMOTIDINE. [Concomitant]
     Active Substance: FAMOTIDINE
     Indication: GASTRIC DISORDER
  7. HUMIRA [Suspect]
     Active Substance: ADALIMUMAB
     Route: 058
     Dates: start: 20210209, end: 202103
  8. HUMIRA [Suspect]
     Active Substance: ADALIMUMAB
     Indication: HIDRADENITIS
     Route: 058
     Dates: start: 202104

REACTIONS (8)
  - Uterine cyst [Recovered/Resolved]
  - Rash macular [Recovering/Resolving]
  - Loose tooth [Not Recovered/Not Resolved]
  - Skin disorder [Recovering/Resolving]
  - Toothache [Recovered/Resolved]
  - Amenorrhoea [Recovered/Resolved]
  - Tooth abscess [Recovering/Resolving]
  - Unevaluable event [Not Recovered/Not Resolved]

NARRATIVE: CASE EVENT DATE: 202008
